FAERS Safety Report 4699062-6 (Version None)
Quarter: 2005Q2

REPORT INFORMATION
  Report Type: 
  Country: None (occurrence: None)
  Receive Date: 20050624
  Receipt Date: 20050418
  Transmission Date: 20051028
  Serious: Yes (Hospitalization, Other)
  Sender: FDA-Public Use
  Company Number: US-BRISTOL-MYERS SQUIBB COMPANY-12938320

PATIENT
  Age: 58 Year
  Sex: Female
  Weight: 77 kg

DRUGS (12)
  1. ABILIFY [Suspect]
     Indication: SCHIZOPHRENIA
     Dates: end: 20050415
  2. PROPAFENONE [Suspect]
     Dates: start: 20041231
  3. CELXA [Concomitant]
     Route: 048
  4. DIGOXIN [Concomitant]
     Route: 048
  5. LABETALOL [Concomitant]
  6. NORVASC [Concomitant]
  7. LOPRESSOR [Concomitant]
     Route: 048
  8. COUMADIN [Concomitant]
  9. MAXZIDE [Concomitant]
  10. VERAPAMIL 80 [Concomitant]
     Route: 048
  11. DEPAKOTE [Concomitant]
     Route: 048
  12. HYDRALAZINE [Concomitant]
     Route: 048

REACTIONS (17)
  - BLOOD GLUCOSE INCREASED [None]
  - BLOOD MAGNESIUM DECREASED [None]
  - BLOOD MAGNESIUM INCREASED [None]
  - BRADYCARDIA [None]
  - CARDIAC ARREST [None]
  - ELECTROCARDIOGRAM QT CORRECTED INTERVAL PROLONGED [None]
  - HEADACHE [None]
  - HYPERLIPIDAEMIA [None]
  - HYPERTENSION [None]
  - LOBAR PNEUMONIA [None]
  - OEDEMA [None]
  - PALPITATIONS [None]
  - RENAL FAILURE [None]
  - SYNCOPE [None]
  - TORSADE DE POINTES [None]
  - URINARY TRACT INFECTION [None]
  - VENTRICULAR TACHYCARDIA [None]
